FAERS Safety Report 26043016 (Version 1)
Quarter: 2025Q4

REPORT INFORMATION
  Report Type: Spontaneous
  Country: US (occurrence: US)
  Receive Date: 20251113
  Receipt Date: 20251113
  Transmission Date: 20260117
  Serious: No
  Sender: ANI
  Company Number: US-ANIPHARMA-2025-US-047770

PATIENT
  Age: 90 Year
  Sex: Female

DRUGS (4)
  1. KERENDIA [Concomitant]
     Active Substance: FINERENONE
  2. JARDIANCE [Concomitant]
     Active Substance: EMPAGLIFLOZIN
  3. TORSEMIDE [Concomitant]
     Active Substance: TORSEMIDE
  4. CORTICOTROPIN [Suspect]
     Active Substance: CORTICOTROPIN
     Indication: Pyrexia
     Dosage: INJECT 40 UNITS (1 SYRINGE) SUBCUTANEOUSLY TWO TIMES A WEEK AS DIRECTED
     Route: 058

REACTIONS (3)
  - Drug ineffective [Not Recovered/Not Resolved]
  - Product use in unapproved indication [Not Recovered/Not Resolved]
  - Drug ineffective for unapproved indication [Not Recovered/Not Resolved]
